FAERS Safety Report 7961028-8 (Version None)
Quarter: 2011Q4

REPORT INFORMATION
  Report Type: 
  Country: None (occurrence: None)
  Receive Date: 20111207
  Receipt Date: 20111202
  Transmission Date: 20120403
  Serious: No
  Sender: FDA-Public Use
  Company Number: US-PFIZER INC-2011252471

PATIENT
  Sex: Male

DRUGS (4)
  1. NITROSTAT [Suspect]
     Indication: ANGINA PECTORIS
     Dosage: 0.4 MG, AS NEEDED
     Route: 060
     Dates: start: 20060101
  2. FUROSEMIDE [Concomitant]
     Dosage: UNK
  3. NITROSTAT [Suspect]
     Indication: CHEST PAIN
     Dosage: 0.4 MG, UNK, 1 TABLET PRN
     Route: 060
     Dates: start: 20110921
  4. COUMADIN [Concomitant]
     Dosage: UNK

REACTIONS (4)
  - HYPERCHOLESTEROLAEMIA [None]
  - PRODUCT SOLUBILITY ABNORMAL [None]
  - INJURY [None]
  - HYPERTENSION [None]
